FAERS Safety Report 19616541 (Version 1)
Quarter: 2021Q3

REPORT INFORMATION
  Report Type: Spontaneous
  Country: ID (occurrence: ID)
  Receive Date: 20210727
  Receipt Date: 20210727
  Transmission Date: 20211014
  Serious: Yes (Life-Threatening, Hospitalization)
  Sender: FDA-Public Use
  Company Number: ID-LUPIN PHARMACEUTICALS INC.-2021-12975

PATIENT
  Age: 56 Year
  Sex: Male

DRUGS (7)
  1. BENZATHINE PENICILLIN G [Concomitant]
     Active Substance: PENICILLIN G BENZATHINE
     Indication: SECONDARY SYPHILIS
  2. BENZATHINE PENICILLIN G [Concomitant]
     Active Substance: PENICILLIN G BENZATHINE
     Indication: PNEUMONIA
     Dosage: 2.4 MILLION INTERNATIONAL UNIT, SINGLE
     Route: 030
  3. CEFTRIAXONE. [Suspect]
     Active Substance: CEFTRIAXONE
     Indication: PNEUMONIA
     Dosage: 2 GRAM, QD
     Route: 065
  4. VANCOMYCIN [Suspect]
     Active Substance: VANCOMYCIN
     Indication: NEUROSYPHILIS
     Dosage: 750 MILLIGRAM, QD
     Route: 042
  5. AZITHROMYCIN ANHYDROUS. [Concomitant]
     Active Substance: AZITHROMYCIN ANHYDROUS
     Indication: PNEUMONIA
     Dosage: 500 MILLIGRAM, QD
     Route: 065
  6. AZITHROMYCIN ANHYDROUS. [Concomitant]
     Active Substance: AZITHROMYCIN ANHYDROUS
     Indication: SECONDARY SYPHILIS
  7. VANCOMYCIN [Suspect]
     Active Substance: VANCOMYCIN
     Indication: PNEUMONIA

REACTIONS (1)
  - Drug ineffective [Unknown]
